FAERS Safety Report 25957239 (Version 1)
Quarter: 2025Q4

REPORT INFORMATION
  Report Type: Spontaneous
  Country: GB (occurrence: GB)
  Receive Date: 20251024
  Receipt Date: 20251024
  Transmission Date: 20260118
  Serious: Yes (Hospitalization)
  Sender: PFIZER
  Company Number: GB-BAXTER-2024BAX010373

PATIENT
  Age: 38 Year
  Sex: Female

DRUGS (26)
  1. TOBRAMYCIN [Suspect]
     Active Substance: TOBRAMYCIN
     Indication: Cystic fibrosis
     Dosage: 340 MG ONCE A DAY, AS A DUAL THERAPY ALONGSIDE FOSFOMYCI
     Route: 042
  2. TOBRAMYCIN [Suspect]
     Active Substance: TOBRAMYCIN
     Indication: Condition aggravated
     Dosage: 2 WEEKS COURSE
     Route: 042
     Dates: start: 20240229, end: 20240306
  3. TOBRAMYCIN [Suspect]
     Active Substance: TOBRAMYCIN
     Indication: Infection
     Dosage: 330 MG, DAILY (2 WEEKS IN TOTAL TO COMPLETE AT HOME)
     Route: 042
     Dates: start: 20231223, end: 20240102
  4. COLISTIN SULFATE [Suspect]
     Active Substance: COLISTIN SULFATE
     Indication: Infection
     Dosage: 2 MU THRICE A DAY FOR 8 DAYS
     Route: 042
  5. COLISTIN SULFATE [Suspect]
     Active Substance: COLISTIN SULFATE
     Indication: Cystic fibrosis
     Dosage: 2 MU THRICE A DAY
     Route: 042
     Dates: start: 20231130
  6. COLISTIN SULFATE [Suspect]
     Active Substance: COLISTIN SULFATE
     Indication: Condition aggravated
     Dosage: 2 MU THRICE A DAY, AS A DUAL THERAPY ALONGSIDE FOSFOMYCIN
     Route: 042
     Dates: start: 20231219
  7. FOSFOMYCIN [Suspect]
     Active Substance: FOSFOMYCIN
     Indication: Infection
     Dosage: 4 G THRICE A DAY
     Route: 042
     Dates: start: 20231130
  8. FOSFOMYCIN [Suspect]
     Active Substance: FOSFOMYCIN
     Indication: Cystic fibrosis
     Dosage: 2000 MG THRICE A DAY FOR 13 DAYS, AS A DUAL THERAPY ALONGSIDE 2 MU COLOMYCIN
     Route: 042
     Dates: start: 20231219
  9. FOSFOMYCIN [Suspect]
     Active Substance: FOSFOMYCIN
     Indication: Condition aggravated
     Dosage: 2000 MG THRICE A DAY FOR 8 DAYS, AS A DUAL THERAPY ALONGSIDE 340 MG TOBRAMYCIN
     Route: 042
  10. FOSFOMYCIN [Suspect]
     Active Substance: FOSFOMYCIN
     Dosage: 2000 MG THRICE A DAY, AS A DUAL THERAPY ALONGSIDE 340 MG TOBRAMYCIN AND 2 MU COLOMYCIN
     Route: 042
  11. FOSFOMYCIN [Suspect]
     Active Substance: FOSFOMYCIN
     Dosage: 2000 MG THRICE A DAY, AS A DUAL THERAPY ALONGSIDE 2 MU COLOMYCIN
     Route: 042
  12. FOSFOMYCIN [Suspect]
     Active Substance: FOSFOMYCIN
     Dosage: 2000 MG THRICE A DAY, AS A DUAL THERAPY ALONGSIDE 2 MU COLOMYCIN
     Route: 042
  13. FOSFOMYCIN [Suspect]
     Active Substance: FOSFOMYCIN
     Dosage: 2000 MG THRICE A DAY, AS A DUAL THERAPY ALONGSIDE 340 MG TOBRAMYCIN AND 2 MU COLOMYCIN
     Route: 042
  14. FOSFOMYCIN [Suspect]
     Active Substance: FOSFOMYCIN
     Dosage: 2000 MG THRICE A DAY, AS A DUAL THERAPY ALONGSIDE 340 MG TOBRAMYCIN AND 2 MU COLOMYCIN
     Route: 042
  15. FOSFOMYCIN [Suspect]
     Active Substance: FOSFOMYCIN
     Dosage: 12 G, DAILY
     Route: 042
     Dates: start: 20231223, end: 20240102
  16. FOSFOMYCIN [Suspect]
     Active Substance: FOSFOMYCIN
     Dosage: 2 WEEKS COURSE
     Route: 042
     Dates: start: 20240926, end: 20241008
  17. FOSFOMYCIN [Suspect]
     Active Substance: FOSFOMYCIN
     Dosage: 2 WEEKS COURSE
     Route: 042
     Dates: start: 20240229, end: 20240308
  18. DEXTROSE MONOHYDRATE [Suspect]
     Active Substance: DEXTROSE MONOHYDRATE
     Indication: Medication dilution
     Dosage: 250 ML THRICE A DAY FOR 13 DAYS
     Route: 042
     Dates: start: 20231219
  19. DEXTROSE MONOHYDRATE [Suspect]
     Active Substance: DEXTROSE MONOHYDRATE
     Dosage: 250 ML THRICE A DAY FOR 8 DAYS
     Route: 042
  20. DEXTROSE MONOHYDRATE [Suspect]
     Active Substance: DEXTROSE MONOHYDRATE
     Dosage: 250 ML THRICE A DAY
  21. DEXTROSE MONOHYDRATE [Suspect]
     Active Substance: DEXTROSE MONOHYDRATE
     Dosage: 250 ML THRICE A DAY
  22. DEXTROSE MONOHYDRATE [Suspect]
     Active Substance: DEXTROSE MONOHYDRATE
     Dosage: 250 ML THRICE A DAY
  23. DEXTROSE MONOHYDRATE [Suspect]
     Active Substance: DEXTROSE MONOHYDRATE
     Dosage: 250 ML THRICE A DAY
  24. DEXTROSE MONOHYDRATE [Suspect]
     Active Substance: DEXTROSE MONOHYDRATE
     Dosage: 250 ML THRICE A DAY
  25. DEXTROSE MONOHYDRATE [Suspect]
     Active Substance: DEXTROSE MONOHYDRATE
     Dosage: 250 ML THRICE A DAY
  26. DEXTROSE MONOHYDRATE [Suspect]
     Active Substance: DEXTROSE MONOHYDRATE
     Dosage: 250 ML THRICE A DAY

REACTIONS (7)
  - General physical health deterioration [Unknown]
  - Malaise [Unknown]
  - Oxygen saturation decreased [Unknown]
  - Dyspnoea [Unknown]
  - Weight decreased [Unknown]
  - Nutritional condition abnormal [Unknown]
  - Haemoptysis [Unknown]

NARRATIVE: CASE EVENT DATE: 20231223
